FAERS Safety Report 9259228 (Version 1)
Quarter: 2013Q2

REPORT INFORMATION
  Report Type: Report from Study
  Country: US (occurrence: US)
  Receive Date: 20130426
  Receipt Date: 20130426
  Transmission Date: 20140414
  Serious: Yes (Life-Threatening, Hospitalization, Other)
  Sender: FDA-Public Use
  Company Number: US-US-EMD SERONO, INC.-7207132

PATIENT
  Age: 51 Year
  Sex: Female
  Weight: 82 kg

DRUGS (2)
  1. REBIF [Suspect]
     Indication: RELAPSING-REMITTING MULTIPLE SCLEROSIS
     Route: 058
     Dates: start: 200604, end: 200704
  2. REBIF [Suspect]
     Route: 058
     Dates: start: 20080822, end: 20130327

REACTIONS (7)
  - Intestinal obstruction [Recovering/Resolving]
  - Dehydration [Recovering/Resolving]
  - Type 2 diabetes mellitus [Unknown]
  - White blood cell count increased [Recovering/Resolving]
  - Red blood cell count decreased [Recovering/Resolving]
  - Diabetic neuropathy [Unknown]
  - Influenza like illness [Unknown]
